FAERS Safety Report 6006999-4 (Version None)
Quarter: 2008Q4

REPORT INFORMATION
  Report Type: 
  Country: None (occurrence: None)
  Receive Date: 20081217
  Receipt Date: 20071213
  Transmission Date: 20090506
  Serious: No
  Sender: FDA-Public Use
  Company Number: US-ASTRAZENECA-2007UW28351

PATIENT
  Age: 63 Year
  Sex: Female
  Weight: 53.5 kg

DRUGS (4)
  1. CRESTOR [Suspect]
     Indication: BLOOD CHOLESTEROL INCREASED
     Route: 048
  2. CRESTOR [Suspect]
     Route: 048
  3. BONIVA [Concomitant]
  4. METOPROLOL TARTRATE [Concomitant]

REACTIONS (3)
  - FATIGUE [None]
  - MYALGIA [None]
  - SENSATION OF HEAVINESS [None]
